FAERS Safety Report 8548688-8 (Version None)
Quarter: 2012Q3

REPORT INFORMATION
  Report Type: 
  Country: None (occurrence: None)
  Receive Date: 20120730
  Receipt Date: 20120718
  Transmission Date: 20120928
  Serious: Yes (Other)
  Sender: FDA-Public Use
  Company Number: PHEH2012US010789

PATIENT
  Sex: Female

DRUGS (13)
  1. VITAMINS NOS [Concomitant]
  2. AFINITOR [Suspect]
     Indication: TUBEROUS SCLEROSIS
     Dosage: 10 MG, DAILY
     Route: 048
     Dates: start: 20120515
  3. LAMICTAL [Concomitant]
  4. CALCIUM SUPPLEMENTS [Concomitant]
  5. DEPO-PROVERA [Concomitant]
  6. TEGRETOL [Concomitant]
  7. KLONOPIN [Concomitant]
  8. KEPPRA [Concomitant]
  9. VITAMIN D [Concomitant]
  10. PRILOSEC [Concomitant]
  11. SODIUM BICARBONATE [Concomitant]
  12. TOPAMAX [Concomitant]
  13. SABRIL [Concomitant]

REACTIONS (14)
  - CONVULSION [None]
  - LETHARGY [None]
  - DIZZINESS [None]
  - FEELING HOT [None]
  - RASH [None]
  - ASTHENIA [None]
  - SOMNOLENCE [None]
  - BLOOD CHOLESTEROL INCREASED [None]
  - BURNING SENSATION [None]
  - FEELING ABNORMAL [None]
  - PAIN IN EXTREMITY [None]
  - FATIGUE [None]
  - DISORIENTATION [None]
  - ARTHRALGIA [None]
